FAERS Safety Report 9912219 (Version 1)
Quarter: 2014Q1

REPORT INFORMATION
  Report Type: Spontaneous
  Country: US (occurrence: US)
  Receive Date: 20140220
  Receipt Date: 20140220
  Transmission Date: 20141002
  Serious: No
  Sender: FDA-Public Use
  Company Number: US-SA-2014SA010534

PATIENT
  Sex: Female

DRUGS (1)
  1. AUVI-Q [Suspect]
     Route: 065

REACTIONS (4)
  - Affect lability [Unknown]
  - Heart rate increased [Unknown]
  - Accidental exposure to product [Unknown]
  - Feeling abnormal [Unknown]
